FAERS Safety Report 9411569 (Version 1)
Quarter: 2013Q3

REPORT INFORMATION
  Report Type: Spontaneous
  Country: US (occurrence: None)
  Receive Date: 20130718
  Receipt Date: 20130718
  Transmission Date: 20140515
  Serious: No
  Sender: FDA-Public Use
  Company Number: None

PATIENT
  Age: 71 Year
  Sex: Female

DRUGS (2)
  1. XARELTO [Suspect]
     Indication: PULMONARY EMBOLISM
     Dosage: 20 MG 1 PILL 1X1DAY @ 6 PM (DINNER)?(30 TABS-PRESCRIPTION FILLED 6/01/13
     Route: 048
     Dates: start: 20130208, end: 20130613
  2. XARELTO [Suspect]
     Indication: KNEE ARTHROPLASTY
     Dosage: 20 MG 1 PILL 1X1DAY @ 6 PM (DINNER)?(30 TABS-PRESCRIPTION FILLED 6/01/13
     Route: 048
     Dates: start: 20130208, end: 20130613

REACTIONS (3)
  - Diarrhoea [None]
  - Vomiting [None]
  - Nausea [None]
